FAERS Safety Report 10433060 (Version 1)
Quarter: 2014Q3

REPORT INFORMATION
  Report Type: Spontaneous
  Country: US (occurrence: None)
  Receive Date: 20140815
  Receipt Date: 20140815
  Transmission Date: 20150326
  Serious: No
  Sender: FDA-Public Use
  Company Number: A-US2014-102116

PATIENT
  Age: 59 Year
  Sex: Female

DRUGS (13)
  1. FUROSEMIDE (FUROSEMIDE SODIUM) [Concomitant]
  2. PLAQUENIL (HYDROXYCHLOROQUINE SULFATE) [Concomitant]
  3. ASPIRIN (ACETYLSALICYLIC ACID) [Concomitant]
     Active Substance: ASPIRIN
  4. KLOR-CON (POTASSIUM CHLORIDE) [Concomitant]
  5. OPSUMIT [Suspect]
     Active Substance: MACITENTAN
     Indication: PULMONARY ARTERIAL HYPERTENSION
     Route: 048
     Dates: start: 20140522
  6. NORVASC [Concomitant]
     Active Substance: AMLODIPINE BESYLATE
  7. PREDNISONE (PREDNISONE ACETATE) [Concomitant]
  8. ADCIRCA [Concomitant]
     Active Substance: TADALAFIL
  9. ALLOPURINOL (ALLOPURINOL SODIUM) [Concomitant]
  10. ZEMPLAR [Concomitant]
     Active Substance: PARICALCITOL
  11. LEVOTHYROXINE (LEVOTHYROXINE SODIUM) [Concomitant]
  12. ADCIRA (TADALAFIL) 05/--/2014 TO UNK [Concomitant]
  13. ATORVASTATIN (ATORVASTATIN CALCIUM) [Concomitant]

REACTIONS (3)
  - Pain in extremity [None]
  - Oedema peripheral [None]
  - Muscle spasms [None]

NARRATIVE: CASE EVENT DATE: 20140522
